FAERS Safety Report 10266804 (Version 3)
Quarter: 2014Q3

REPORT INFORMATION
  Report Type: Spontaneous
  Country: BE (occurrence: BE)
  Receive Date: 20140630
  Receipt Date: 20140905
  Transmission Date: 20150326
  Serious: Yes (Other)
  Sender: FDA-Public Use
  Company Number: BE-AMGEN-BELSP2014047566

PATIENT
  Age: 72 Year
  Sex: Female
  Weight: 69.3 kg

DRUGS (5)
  1. CLAX [Concomitant]
     Indication: OSTEOPOROSIS
     Dosage: UNK
     Route: 048
     Dates: start: 201206
  2. PROLIA [Suspect]
     Active Substance: DENOSUMAB
     Indication: OSTEOPOROSIS POSTMENOPAUSAL
     Dosage: 60 MG, Q6MO
     Route: 058
     Dates: start: 20111025, end: 20140620
  3. LIPITOR [Concomitant]
     Active Substance: ATORVASTATIN CALCIUM
     Indication: HYPERCHOLESTEROLAEMIA
     Dosage: 10 MG, UNK
     Route: 065
  4. PREDNISOLONE. [Concomitant]
     Active Substance: PREDNISOLONE
     Indication: POLYMYALGIA RHEUMATICA
     Dosage: 4 MG, QD
     Route: 048
     Dates: start: 201208
  5. TOTALIP [Concomitant]
     Active Substance: ATORVASTATIN
     Indication: HYPERCHOLESTEROLAEMIA
     Dosage: 10 MG, QD
     Route: 048

REACTIONS (12)
  - Oedema peripheral [Unknown]
  - Skin atrophy [Unknown]
  - Back pain [Unknown]
  - Blood creatinine increased [Recovered/Resolved]
  - Renal impairment [Recovered/Resolved]
  - Prerenal failure [Unknown]
  - Osteonecrosis of jaw [Not Recovered/Not Resolved]
  - Peripheral venous disease [Unknown]
  - Cushingoid [Unknown]
  - Cholelithiasis [Unknown]
  - Renal cyst [Unknown]
  - Visual acuity reduced [Unknown]

NARRATIVE: CASE EVENT DATE: 201108
